FAERS Safety Report 11229948 (Version 1)
Quarter: 2015Q3

REPORT INFORMATION
  Report Type: Spontaneous
  Country: JP (occurrence: JP)
  Receive Date: 20150701
  Receipt Date: 20150701
  Transmission Date: 20151125
  Serious: Yes (Hospitalization)
  Sender: FDA-Public Use
  Company Number: JP-TAKEDA-2015TJP011438

PATIENT
  Age: 9 Decade
  Sex: Female

DRUGS (1)
  1. NESINA [Suspect]
     Active Substance: ALOGLIPTIN BENZOATE
     Indication: DIABETES MELLITUS
     Dosage: UNK, QD
     Route: 048
     Dates: end: 20150622

REACTIONS (1)
  - Hepatic function abnormal [Not Recovered/Not Resolved]

NARRATIVE: CASE EVENT DATE: 20150622
